FAERS Safety Report 4848705-2 (Version None)
Quarter: 2005Q4

REPORT INFORMATION
  Report Type: 
  Country: None (occurrence: None)
  Receive Date: 20051208
  Receipt Date: 20051123
  Transmission Date: 20060501
  Serious: Yes (Life-Threatening, Hospitalization, Other)
  Sender: FDA-Public Use
  Company Number: US-BRISTOL-MYERS SQUIBB COMPANY-13193982

PATIENT
  Age: 69 Year
  Sex: Male

DRUGS (7)
  1. CETUXIMAB [Suspect]
     Indication: LUNG CANCER METASTATIC
     Route: 042
     Dates: start: 20051121, end: 20051121
  2. CARBOPLATIN [Suspect]
     Route: 042
     Dates: start: 20051121, end: 20051121
  3. DOCETAXEL [Suspect]
     Indication: LUNG CANCER METASTATIC
     Route: 042
     Dates: start: 20051121, end: 20051121
  4. BENADRYL [Concomitant]
     Indication: PREMEDICATION
  5. FAMOTIDINE [Concomitant]
     Indication: PREMEDICATION
  6. DEXAMETHASONE [Concomitant]
  7. ZOPRIN [Concomitant]
     Indication: PREMEDICATION

REACTIONS (2)
  - BLOOD CREATININE INCREASED [None]
  - HYPERSENSITIVITY [None]
